FAERS Safety Report 4951659-1 (Version None)
Quarter: 2006Q1

REPORT INFORMATION
  Report Type: 
  Country: None (occurrence: None)
  Receive Date: 20060320
  Receipt Date: 20060309
  Transmission Date: 20060701
  Serious: Yes (Hospitalization, Disabling)
  Sender: FDA-Public Use
  Company Number: 2005141234

PATIENT
  Age: 81 Year
  Sex: Female
  Weight: 67 kg

DRUGS (24)
  1. MACUGEN [Suspect]
     Indication: MACULAR DEGENERATION
     Dosage: (0.3 MG, 1 IN 6 WK), INTRAVITREOUS
     Dates: start: 20050812, end: 20050923
  2. KARVEA (IRBESARTAN) [Concomitant]
  3. ACIMAX (OMEPRAZOLE) [Concomitant]
  4. ADALAT OROS (NIFEDIPINE) [Concomitant]
  5. SOLPRIN (ACETYLSALICYLATE CALCIUM) [Concomitant]
  6. TEMAZEPAM [Concomitant]
  7. QUINBISUL (QUININE BISULFATE) [Concomitant]
  8. NORMACOL (FRANGULA EXTRACT, STERCULIA) [Concomitant]
  9. STEMZINE (PROCHLORPERAZINE MALEATE) [Concomitant]
  10. SODIUM (SODIUM) [Concomitant]
  11. MACUVISION (TAURINE, THIOCTIC ACID, TOCOPHEROL) [Concomitant]
  12. GLUCOSAMINE (GLUCOSAMINE) [Concomitant]
  13. VITAMIN B (VITAMIN B) [Concomitant]
  14. FOSAMAX [Concomitant]
  15. XALATAN [Concomitant]
  16. MYDRIACYL [Concomitant]
  17. PHENYLEPHRINE (PHENYLEPHRINE) [Concomitant]
  18. FLUORESCEIN (FLUORESCEIN) [Concomitant]
  19. POVIDONE IODINE [Concomitant]
  20. CHLORAMPHENICOL [Concomitant]
  21. XYLOCAINE [Concomitant]
  22. OXYBUPROCAINE HYDROCHLORIDE (OXYBUPROCAINE HYDROCHLORIDE) [Concomitant]
  23. TRIMETHOPRIM [Concomitant]
  24. ALPRIM (TRIMETHOPRIM) [Concomitant]

REACTIONS (15)
  - DYSPHAGIA [None]
  - EYE INFLAMMATION [None]
  - EYE PAIN [None]
  - EYE SWELLING [None]
  - EYELID DISORDER [None]
  - FIBROSIS [None]
  - HYPONATRAEMIA [None]
  - KERATOPATHY [None]
  - MOUTH ULCERATION [None]
  - NASOPHARYNGEAL DISORDER [None]
  - NAUSEA [None]
  - ORAL MUCOSAL DISORDER [None]
  - SCAR [None]
  - STEVENS-JOHNSON SYNDROME [None]
  - VISUAL ACUITY REDUCED [None]
